FAERS Safety Report 17420763 (Version 5)
Quarter: 2023Q2

REPORT INFORMATION
  Report Type: Spontaneous
  Country: US (occurrence: US)
  Receive Date: 20200214
  Receipt Date: 20230412
  Transmission Date: 20230722
  Serious: No
  Sender: FDA-Public Use
  Company Number: US-PFIZER INC-2020066118

PATIENT
  Age: 72 Year
  Sex: Male
  Weight: 72.57 kg

DRUGS (3)
  1. VYNDAQEL [Suspect]
     Active Substance: TAFAMIDIS MEGLUMINE
     Indication: Cardiac amyloidosis
     Dosage: UNK
     Dates: start: 20191106
  2. VYNDAQEL [Suspect]
     Active Substance: TAFAMIDIS MEGLUMINE
     Indication: Cardiac disorder
     Dosage: 80 MG, 2X/DAY (IN THE MORNING AND AT NIGHT )
     Route: 048
  3. VYNDAQEL [Suspect]
     Active Substance: TAFAMIDIS MEGLUMINE
     Dosage: 2X/DAY (FOUR PILLS 80MG IN THE MORNING AND IN THE AFTERNOON)

REACTIONS (3)
  - Urinary tract infection [Unknown]
  - Overdose [Unknown]
  - Off label use [Unknown]
